FAERS Safety Report 19679302 (Version 5)
Quarter: 2021Q3

REPORT INFORMATION
  Report Type: Report from Study
  Country: US (occurrence: US)
  Receive Date: 20210809
  Receipt Date: 20210928
  Transmission Date: 20211014
  Serious: Yes (Hospitalization)
  Sender: FDA-Public Use
  Company Number: US-EISAI MEDICAL RESEARCH-EC-2021-097488

PATIENT
  Age: 65 Year
  Sex: Male
  Weight: 83.5 kg

DRUGS (21)
  1. LEVOFLOXACIN. [Concomitant]
     Active Substance: LEVOFLOXACIN
     Dates: start: 20210622
  2. VORICONAZOLE. [Concomitant]
     Active Substance: VORICONAZOLE
     Dates: start: 20210707
  3. OXYGEN. [Concomitant]
     Active Substance: OXYGEN
  4. LENVATINIB [Suspect]
     Active Substance: LENVATINIB
     Route: 048
     Dates: start: 20210622, end: 20210622
  5. ADVAIR HFA [Concomitant]
     Active Substance: FLUTICASONE PROPIONATE\SALMETEROL XINAFOATE
     Dates: start: 202011
  6. AMLODIPINE BESYLATE. [Concomitant]
     Active Substance: AMLODIPINE BESYLATE
     Dates: start: 20210202
  7. TESSALON [Concomitant]
     Active Substance: BENZONATATE
     Dates: start: 20210620
  8. LENVATINIB [Suspect]
     Active Substance: LENVATINIB
     Indication: SQUAMOUS CELL CARCINOMA OF HEAD AND NECK
     Route: 048
     Dates: start: 20210601, end: 20210601
  9. GABAPENTIN. [Concomitant]
     Active Substance: GABAPENTIN
     Dates: start: 20200302
  10. TRAZODONE HYDROCHLORIDE. [Concomitant]
     Active Substance: TRAZODONE HYDROCHLORIDE
     Dates: start: 20200407
  11. PANTOPRAZOLE [Concomitant]
     Active Substance: PANTOPRAZOLE
     Dates: start: 202011
  12. LORAZEPAM. [Concomitant]
     Active Substance: LORAZEPAM
     Dates: start: 20200407
  13. ALBUTEROL SULFATE. [Concomitant]
     Active Substance: ALBUTEROL SULFATE
     Dates: start: 20210419
  14. ROBITUSSIN COUGH AND CHEST CONGESTION DM [Concomitant]
     Active Substance: DEXTROMETHORPHAN HYDROBROMIDE\GUAIFENESIN
     Dates: start: 202011
  15. HYDROCHLOROTHIAZIDE. [Concomitant]
     Active Substance: HYDROCHLOROTHIAZIDE
     Dates: start: 20170310
  16. MIRALAX [Concomitant]
     Active Substance: POLYETHYLENE GLYCOL 3350
     Dates: start: 202011
  17. METAMUCIL [Concomitant]
     Active Substance: PLANTAGO SEED
     Dates: start: 202011
  18. ATORVASTATIN [Concomitant]
     Active Substance: ATORVASTATIN
     Dates: start: 20180905
  19. CODEINE PHOSPHATE;PROMETHAZINE HYDROCHLORIDE [Concomitant]
     Dates: start: 20200629
  20. LEVOTHYROXINE SODIUM. [Concomitant]
     Active Substance: LEVOTHYROXINE SODIUM
     Dates: start: 20200926
  21. ACETAMINOPHEN;HYDROCODONE BITARTRATE [Concomitant]
     Active Substance: ACETAMINOPHEN\HYDROCODONE BITARTRATE
     Dates: start: 20200706

REACTIONS (1)
  - Pulmonary embolism [Not Recovered/Not Resolved]

NARRATIVE: CASE EVENT DATE: 20210731
